FAERS Safety Report 20499462 (Version 1)
Quarter: 2022Q1

REPORT INFORMATION
  Report Type: Spontaneous
  Country: CA (occurrence: CA)
  Receive Date: 20220222
  Receipt Date: 20220222
  Transmission Date: 20220423
  Serious: Yes (Other)
  Sender: FDA-Public Use
  Company Number: None

PATIENT
  Age: 81 Year
  Sex: Male
  Weight: 60 kg

DRUGS (4)
  1. CARBOPLATIN [Suspect]
     Active Substance: CARBOPLATIN
     Indication: Chemotherapy
     Dosage: SOLUTION INTRAVENOUS, 1 EVERY 21 DAYS
     Route: 042
  2. DEXAMETHASONE [Concomitant]
     Active Substance: DEXAMETHASONE
     Dosage: LIQUID INTRA-ARTICULAR
  3. FOLIC ACID [Concomitant]
     Active Substance: FOLIC ACID
  4. GRANISETRON [Concomitant]
     Active Substance: GRANISETRON

REACTIONS (6)
  - Dyspnoea [Unknown]
  - Flushing [Unknown]
  - Hypotension [Unknown]
  - Limb injury [Unknown]
  - Peripheral swelling [Unknown]
  - Restlessness [Unknown]
